FAERS Safety Report 5707003-5 (Version None)
Quarter: 2008Q2

REPORT INFORMATION
  Report Type: 
  Country: None (occurrence: None)
  Receive Date: 20080416
  Receipt Date: 20080403
  Transmission Date: 20081010
  Serious: Yes (Hospitalization)
  Sender: FDA-Public Use
  Company Number: FR-WYE-H03624808

PATIENT
  Sex: Male

DRUGS (15)
  1. CORDARONE [Suspect]
     Indication: ARRHYTHMIA
     Route: 048
     Dates: start: 20070730
  2. BACTRIM [Suspect]
     Indication: PNEUMOCYSTIS JIROVECI PNEUMONIA
     Route: 048
     Dates: start: 20070715
  3. LESCOL [Suspect]
     Indication: HYPERCHOLESTEROLAEMIA
     Route: 048
  4. IMMUNE GLOBULIN INTRAVENOUS (HUMAN) [Suspect]
     Indication: SELECTIVE IGG SUBCLASS DEFICIENCY
     Route: 042
     Dates: start: 20070915, end: 20070918
  5. HUMALOG [Concomitant]
     Indication: DIABETES MELLITUS
     Dosage: 1000 IU PRN
     Route: 058
     Dates: start: 20070801
  6. CALCIPARINE [Concomitant]
     Indication: THROMBOSIS PROPHYLAXIS
     Route: 058
     Dates: start: 20070705
  7. LANTUS [Concomitant]
     Indication: DIABETES MELLITUS
     Dosage: 20 IU (FREQUENCY UNSPECIFIED)
     Route: 058
     Dates: start: 20070801
  8. INIPOMP [Concomitant]
     Route: 048
     Dates: start: 20070730
  9. NEORECORMON [Concomitant]
     Indication: ANAEMIA
     Route: 058
  10. PEGASYS [Concomitant]
     Indication: HEPATITIS C
     Dosage: ^90 MCG BY WEEK^
     Route: 058
     Dates: start: 20060101
  11. REBETOL [Concomitant]
     Indication: HEPATITIS C
     Dosage: ^200 MG } QID^
     Route: 048
     Dates: start: 20060101
  12. PROGRAF [Concomitant]
     Indication: HEPATITIS C
     Route: 048
     Dates: start: 20060101, end: 20070831
  13. SIROLIMUS [Concomitant]
     Indication: LIVER TRANSPLANT
     Route: 048
     Dates: start: 20070901
  14. CORTANCYL [Concomitant]
     Indication: LIVER TRANSPLANT
     Dosage: 10 MG (FREQUENCY UNSPECIFIED)
     Route: 048
     Dates: start: 20070831
  15. CYMEVAN [Suspect]
     Indication: CYTOMEGALOVIRUS INFECTION
     Route: 048

REACTIONS (2)
  - HYPERTENSION [None]
  - RENAL FAILURE ACUTE [None]
